FAERS Safety Report 9671466 (Version 1)
Quarter: 2013Q4

REPORT INFORMATION
  Report Type: Spontaneous
  Country: US (occurrence: None)
  Receive Date: 20131105
  Receipt Date: 20131105
  Transmission Date: 20140711
  Serious: No
  Sender: FDA-Public Use
  Company Number: None

PATIENT
  Age: 67 Year
  Sex: Female

DRUGS (1)
  1. BENICAR [Suspect]
     Indication: BLOOD PRESSURE
     Dosage: ONE ONCE DAILY
     Route: 048
     Dates: start: 20130906, end: 20131104

REACTIONS (2)
  - Diarrhoea [None]
  - Urine output decreased [None]
